FAERS Safety Report 19247723 (Version 1)
Quarter: 2021Q2

REPORT INFORMATION
  Report Type: Spontaneous
  Country: US (occurrence: US)
  Receive Date: 20210512
  Receipt Date: 20210512
  Transmission Date: 20210717
  Serious: Yes (Other)
  Sender: FDA-Public Use
  Company Number: None

PATIENT
  Age: 51 Year
  Sex: Male
  Weight: 99.8 kg

DRUGS (10)
  1. PRASUGREL. [Concomitant]
     Active Substance: PRASUGREL
     Dates: start: 20210428, end: 20210505
  2. TOCILIZUMAB. [Suspect]
     Active Substance: TOCILIZUMAB
     Indication: COVID-19
     Dosage: ?          OTHER FREQUENCY:ONCE;?
     Route: 042
     Dates: start: 20210423, end: 20210423
  3. DEXAMETHASONE. [Concomitant]
     Active Substance: DEXAMETHASONE
     Dates: start: 20210417, end: 20210426
  4. PREDNISONE. [Concomitant]
     Active Substance: PREDNISONE
     Dates: start: 20210426, end: 20210505
  5. PIPERACILLIN/TAZOBACTAM [Concomitant]
     Active Substance: PIPERACILLIN SODIUM\TAZOBACTAM SODIUM
     Dates: start: 20210430, end: 20210505
  6. ENOXAPARIN [Concomitant]
     Active Substance: ENOXAPARIN
     Dates: start: 20210417, end: 20210501
  7. REMDESIVIR. [Concomitant]
     Active Substance: REMDESIVIR
     Dates: start: 20210418, end: 20210422
  8. ASPIRIN. [Concomitant]
     Active Substance: ASPIRIN
     Dates: start: 20210428, end: 20210505
  9. CEFTRIAXONE. [Concomitant]
     Active Substance: CEFTRIAXONE
     Dates: start: 20210417, end: 20210424
  10. DOXYCYCLINE. [Concomitant]
     Active Substance: DOXYCYCLINE
     Dates: start: 20210417, end: 20210424

REACTIONS (1)
  - Large intestine perforation [None]

NARRATIVE: CASE EVENT DATE: 20210507
